FAERS Safety Report 8367141-8 (Version None)
Quarter: 2012Q2

REPORT INFORMATION
  Report Type: 
  Country: None (occurrence: None)
  Receive Date: 20120517
  Receipt Date: 20120502
  Transmission Date: 20120825
  Serious: Yes (Other)
  Sender: FDA-Public Use
  Company Number: US-WATSON-2012-07608

PATIENT
  Sex: Female
  Weight: 52 kg

DRUGS (2)
  1. QUASENSE [Suspect]
     Indication: CONTRACEPTION
     Dosage: 1 TABLET DAILY
     Route: 048
     Dates: start: 20120430, end: 20120501
  2. QUASENSE [Suspect]
     Dosage: 1 TABLET DAILY
     Route: 048
     Dates: start: 20090101, end: 20120429

REACTIONS (8)
  - VISUAL IMPAIRMENT [None]
  - HEADACHE [None]
  - MALAISE [None]
  - TRANSIENT ISCHAEMIC ATTACK [None]
  - DYSARTHRIA [None]
  - VERTIGO [None]
  - HYPOAESTHESIA [None]
  - PAIN IN EXTREMITY [None]
